FAERS Safety Report 19174316 (Version 1)
Quarter: 2021Q2

REPORT INFORMATION
  Report Type: Spontaneous
  Country: FR (occurrence: FR)
  Receive Date: 20210423
  Receipt Date: 20210423
  Transmission Date: 20210717
  Serious: Yes (Hospitalization)
  Sender: FDA-Public Use
  Company Number: FR-ORGANON-O2104FRA001140

PATIENT
  Age: 81 Year
  Sex: Female
  Weight: 56 kg

DRUGS (5)
  1. CARDENSIEL [Suspect]
     Active Substance: BISOPROLOL FUMARATE
     Indication: HYPERTENSION
     Dosage: 1 DOSAGE FORM, QD
     Route: 048
  2. KARDEGIC [Suspect]
     Active Substance: ASPIRIN DL-LYSINE
     Indication: CARDIAC VALVE DISEASE
     Dosage: 1 DOSAGE FORM, QD, POWDER FOR ORAL SOLUTION IN SINGLE?DOSE SACHET)
     Route: 048
  3. COMIRNATY [Suspect]
     Active Substance: TOZINAMERAN
     Indication: COVID-19 IMMUNISATION
     Dosage: 1 DOSAGE FORM, ONCE (1 TOTAL)
     Route: 030
     Dates: start: 20210203, end: 20210203
  4. COZAAR [Suspect]
     Active Substance: LOSARTAN POTASSIUM
     Dosage: 1 DOSAGE FORM, QD, SCORED COATED TABLET
     Route: 048
  5. TWICOR [Suspect]
     Active Substance: EZETIMIBE\ROSUVASTATIN
     Indication: HYPERCHOLESTEROLAEMIA
     Dosage: 1 DOSAGE FORM, QD
     Route: 048

REACTIONS (3)
  - Cerebral haematoma [Recovering/Resolving]
  - Fall [Recovering/Resolving]
  - Malaise [Recovering/Resolving]

NARRATIVE: CASE EVENT DATE: 20210302
